FAERS Safety Report 15867182 (Version 1)
Quarter: 2019Q1

REPORT INFORMATION
  Report Type: Report from Study
  Country: US (occurrence: US)
  Receive Date: 20190125
  Receipt Date: 20190125
  Transmission Date: 20190417
  Serious: Yes (Other)
  Sender: FDA-Public Use
  Company Number: PHEH2019US003202

PATIENT
  Age: 24 Year
  Sex: Male
  Weight: 61.23 kg

DRUGS (3)
  1. MYFORTIC [Suspect]
     Active Substance: MYCOPHENOLATE SODIUM
     Indication: PRODUCT USED FOR UNKNOWN INDICATION
     Dosage: 2 DF, QD (360 ML)
     Route: 048
     Dates: start: 2016
  2. MYFORTIC [Suspect]
     Active Substance: MYCOPHENOLATE SODIUM
     Dosage: 2 DF, QD
     Route: 048
     Dates: start: 2017, end: 201706
  3. MYFORTIC [Suspect]
     Active Substance: MYCOPHENOLATE SODIUM
     Dosage: 3 DF, QD
     Route: 048
     Dates: start: 201701

REACTIONS (1)
  - Kidney transplant rejection [Unknown]

NARRATIVE: CASE EVENT DATE: 201704
